FAERS Safety Report 7102123-5 (Version None)
Quarter: 2010Q4

REPORT INFORMATION
  Report Type: 
  Country: None (occurrence: None)
  Receive Date: 20101115
  Receipt Date: 20101108
  Transmission Date: 20110411
  Serious: Yes (Hospitalization)
  Sender: FDA-Public Use
  Company Number: DE-BIOGENIDEC-2010BI029058

PATIENT
  Age: 28 Year
  Sex: Female
  Weight: 162 kg

DRUGS (6)
  1. AVONEX [Suspect]
     Indication: RELAPSING-REMITTING MULTIPLE SCLEROSIS
     Route: 030
     Dates: start: 20100401
  2. CIPROFLOXACIN [Concomitant]
     Indication: URINARY TRACT INFECTION
     Route: 048
     Dates: start: 20100301, end: 20100301
  3. CIPROFLOXACIN [Concomitant]
     Route: 048
     Dates: start: 20100801, end: 20100801
  4. MICTONORM [Concomitant]
     Indication: NEUROGENIC BLADDER
     Dates: start: 20100701
  5. SPASMEX [Concomitant]
     Indication: NEUROGENIC BLADDER
     Dates: start: 20100801, end: 20100801
  6. SPASMEX [Concomitant]
     Dates: start: 20100801

REACTIONS (7)
  - BLOOD GLUCOSE INCREASED [None]
  - HYPERTENSION [None]
  - NEUTROPHIL PERCENTAGE INCREASED [None]
  - SINUS TACHYCARDIA [None]
  - SUPRAVENTRICULAR EXTRASYSTOLES [None]
  - TACHYCARDIA [None]
  - VENTRICULAR EXTRASYSTOLES [None]
